FAERS Safety Report 8764391 (Version 7)
Quarter: 2013Q2

REPORT INFORMATION
  Report Type: Report from Study
  Country: MY (occurrence: MY)
  Receive Date: 20120831
  Receipt Date: 20130424
  Transmission Date: 20140414
  Serious: Yes (Other)
  Sender: FDA-Public Use
  Company Number: PHHO2012MY012506

PATIENT
  Age: 24 Year
  Sex: Female
  Weight: 52 kg

DRUGS (2)
  1. FTY [Suspect]
     Indication: MULTIPLE SCLEROSIS
     Dosage: 0.5 MG, UNK
     Route: 048
     Dates: start: 20120724, end: 20120826
  2. FTY [Suspect]
     Dosage: 0.5 MG, UNK
     Route: 048
     Dates: start: 20121228

REACTIONS (1)
  - Drug-induced liver injury [Recovered/Resolved]
